FAERS Safety Report 25759804 (Version 1)
Quarter: 2025Q3

REPORT INFORMATION
  Report Type: Spontaneous
  Country: JP (occurrence: JP)
  Receive Date: 20250904
  Receipt Date: 20250904
  Transmission Date: 20251020
  Serious: Yes (Hospitalization)
  Sender: INSMED
  Company Number: JP-INSMED, INC.-2025-03377-JP

PATIENT
  Sex: Female

DRUGS (2)
  1. ARIKAYCE [Suspect]
     Active Substance: AMIKACIN
     Indication: Product used for unknown indication
     Route: 055
  2. ARIKAYCE [Suspect]
     Active Substance: AMIKACIN
     Route: 055

REACTIONS (9)
  - Hospitalisation [Unknown]
  - Memory impairment [Unknown]
  - Lung disorder [Unknown]
  - Cough [Not Recovered/Not Resolved]
  - Haemoptysis [Unknown]
  - Dyspnoea [Unknown]
  - Fatigue [Unknown]
  - Wrong technique in product usage process [Unknown]
  - Accidental underdose [Unknown]
